FAERS Safety Report 7537878-9 (Version None)
Quarter: 2011Q2

REPORT INFORMATION
  Report Type: 
  Country: None (occurrence: None)
  Receive Date: 20110609
  Receipt Date: 20110525
  Transmission Date: 20111010
  Serious: No
  Sender: FDA-Public Use
  Company Number: US-B.I. PHARMACEUTICALS,INC./RIDGEFIELD-2011-BP-10342BP

PATIENT
  Sex: Female
  Weight: 75.3 kg

DRUGS (6)
  1. ASPIRIN [Concomitant]
     Dosage: 81 MG
  2. FUROSEMIDE [Concomitant]
     Dosage: 20 MG
  3. CARVEDILOL [Concomitant]
     Dosage: 50 MG
  4. POTASSIUM CHLORIDE [Concomitant]
  5. LIPITOR [Concomitant]
     Dosage: 10 MG
  6. PRADAXA [Suspect]
     Dosage: 300 MG
     Dates: start: 20110404, end: 20110422

REACTIONS (5)
  - OROPHARYNGEAL PAIN [None]
  - THROAT IRRITATION [None]
  - DYSPHAGIA [None]
  - ABDOMINAL PAIN UPPER [None]
  - CHEST PAIN [None]
